FAERS Safety Report 25144571 (Version 2)
Quarter: 2025Q2

REPORT INFORMATION
  Report Type: Other
  Country: EG (occurrence: EG)
  Receive Date: 20250401
  Receipt Date: 20250421
  Transmission Date: 20250717
  Serious: Yes (Death, Hospitalization, Other)
  Sender: ALVOGEN
  Company Number: EG-ALVOGEN-2025096534

PATIENT
  Sex: Female

DRUGS (8)
  1. DOXORUBICIN [Suspect]
     Active Substance: DOXORUBICIN
     Indication: Hodgkin^s disease lymphocyte depletion type stage IV
     Route: 042
  2. DOXORUBICIN [Suspect]
     Active Substance: DOXORUBICIN
     Indication: Hodgkin^s disease lymphocyte depletion type stage IV
     Route: 042
  3. VINCRISTINE [Suspect]
     Active Substance: VINCRISTINE
     Indication: Hodgkin^s disease lymphocyte depletion type stage IV
     Route: 042
  4. VINCRISTINE [Suspect]
     Active Substance: VINCRISTINE
     Indication: Hodgkin^s disease lymphocyte depletion type stage IV
     Route: 042
  5. ETOPOSIDE [Suspect]
     Active Substance: ETOPOSIDE
     Indication: Hodgkin^s disease lymphocyte depletion type stage IV
     Route: 042
  6. ETOPOSIDE [Suspect]
     Active Substance: ETOPOSIDE
     Indication: Hodgkin^s disease lymphocyte depletion type stage IV
     Route: 042
  7. PREDNISONE [Suspect]
     Active Substance: PREDNISONE
     Indication: Hodgkin^s disease lymphocyte depletion type stage IV
     Route: 048
  8. PREDNISONE [Suspect]
     Active Substance: PREDNISONE
     Indication: Hodgkin^s disease lymphocyte depletion type stage IV
     Route: 048

REACTIONS (13)
  - Toxicity to various agents [Fatal]
  - Disease progression [Fatal]
  - Hodgkin^s disease lymphocyte depletion type stage IV [Fatal]
  - Intraventricular haemorrhage [Fatal]
  - Seizure [Fatal]
  - Immunodeficiency [Fatal]
  - Sepsis [Fatal]
  - Vascular device infection [Fatal]
  - Lower respiratory tract infection [Fatal]
  - Septic shock [Fatal]
  - Bacteraemia [Fatal]
  - Central nervous system lesion [Fatal]
  - Cardiotoxicity [Unknown]
